FAERS Safety Report 23786989 (Version 4)
Quarter: 2024Q3

REPORT INFORMATION
  Report Type: Spontaneous
  Country: US (occurrence: US)
  Receive Date: 20240426
  Receipt Date: 20240902
  Transmission Date: 20241016
  Serious: Yes (Other)
  Sender: BRISTOL MYERS SQUIBB
  Company Number: US-BRISTOL-MYERS SQUIBB COMPANY-2024-064699

PATIENT
  Age: 84 Year
  Sex: Female
  Weight: 77.11 kg

DRUGS (2)
  1. REVLIMID [Suspect]
     Active Substance: LENALIDOMIDE
     Indication: Plasma cell myeloma
     Route: 048
     Dates: start: 20201202
  2. REVLIMID [Suspect]
     Active Substance: LENALIDOMIDE
     Route: 048
     Dates: start: 20240307

REACTIONS (6)
  - Epistaxis [Not Recovered/Not Resolved]
  - Fatigue [Unknown]
  - Fall [Unknown]
  - Muscle spasms [Unknown]
  - White blood cell count decreased [Unknown]
  - Red blood cell count decreased [Unknown]
